FAERS Safety Report 9408663 (Version 1)
Quarter: 2013Q3

REPORT INFORMATION
  Report Type: Spontaneous
  Country: US (occurrence: None)
  Receive Date: 20130716
  Receipt Date: 20130716
  Transmission Date: 20140515
  Serious: Yes (Other)
  Sender: FDA-Public Use
  Company Number: FK201302515

PATIENT
  Age: 80 Year
  Sex: Male

DRUGS (4)
  1. IFOSFAMIDE [Suspect]
     Indication: DIFFUSE LARGE B-CELL LYMPHOMA STAGE IV
  2. CARBOPLATIN [Suspect]
     Indication: DIFFUSE LARGE B-CELL LYMPHOMA STAGE IV
  3. ETOPOSIDE [Suspect]
     Indication: DIFFUSE LARGE B-CELL LYMPHOMA STAGE IV
  4. RITUXAN [Suspect]
     Indication: DIFFUSE LARGE B-CELL LYMPHOMA STAGE IV

REACTIONS (1)
  - Acute lymphocytic leukaemia [None]
